FAERS Safety Report 15938794 (Version 1)
Quarter: 2019Q1

REPORT INFORMATION
  Report Type: Spontaneous
  Country: US (occurrence: US)
  Receive Date: 20190208
  Receipt Date: 20190208
  Transmission Date: 20190417
  Serious: No
  Sender: FDA-Public Use
  Company Number: US-SA-2019SA035328

PATIENT
  Sex: Female

DRUGS (1)
  1. ZANTAC 75 [Suspect]
     Active Substance: RANITIDINE HYDROCHLORIDE
     Indication: GASTROOESOPHAGEAL REFLUX DISEASE
     Dosage: 75 MG, BID (MORNING AN DEVENING)
     Route: 065
     Dates: start: 20190110

REACTIONS (4)
  - Chest pain [Unknown]
  - Headache [Unknown]
  - Back pain [Unknown]
  - Constipation [Unknown]
